FAERS Safety Report 9424586 (Version 1)
Quarter: 2013Q3

REPORT INFORMATION
  Report Type: Spontaneous
  Country: US (occurrence: None)
  Receive Date: 20130726
  Receipt Date: 20130726
  Transmission Date: 20140515
  Serious: Yes (Life-Threatening, Hospitalization, Other)
  Sender: FDA-Public Use
  Company Number: None

PATIENT
  Age: 73 Year
  Sex: Male
  Weight: 96.16 kg

DRUGS (1)
  1. RICOLA COUGH DROPS [Suspect]
     Indication: COUGH
     Dosage: 1 COUGH DROP ONLY ONCE
     Dates: start: 20130306

REACTIONS (3)
  - Hallucination, visual [None]
  - Atrial fibrillation [None]
  - Palpitations [None]
